FAERS Safety Report 12134009 (Version 1)
Quarter: 2016Q1

REPORT INFORMATION
  Report Type: Spontaneous
  Country: US (occurrence: US)
  Receive Date: 20160301
  Receipt Date: 20160301
  Transmission Date: 20160526
  Serious: No
  Sender: FDA-Public Use
  Company Number: US-INSYS THERAPEUTICS, INC-INS201505-000219

PATIENT
  Age: 24 Year
  Sex: Female

DRUGS (3)
  1. FENTANYL TRANSDERMAL SYSTEM [Concomitant]
     Active Substance: FENTANYL
  2. SUBSYS [Suspect]
     Active Substance: FENTANYL
     Indication: PAIN
     Dates: start: 201312
  3. CELEXA [Concomitant]
     Active Substance: CITALOPRAM HYDROBROMIDE

REACTIONS (2)
  - Off label use [Unknown]
  - Drug dependence [Unknown]

NARRATIVE: CASE EVENT DATE: 201312
